FAERS Safety Report 7436751-4 (Version None)
Quarter: 2011Q2

REPORT INFORMATION
  Report Type: 
  Country: None (occurrence: None)
  Receive Date: 20110426
  Receipt Date: 20110412
  Transmission Date: 20111010
  Serious: Yes (Other)
  Sender: FDA-Public Use
  Company Number: FR-AMGEN-FRASP2011020687

PATIENT
  Sex: Male

DRUGS (8)
  1. JOSACIN                            /00273601/ [Interacting]
     Indication: INFLUENZA
  2. OMEPRAZOLE [Concomitant]
     Dosage: 20 UNK, AS NEEDED
  3. METFORMIN [Concomitant]
     Dosage: 1000 UNK, 2X/DAY
  4. CRESTOR [Concomitant]
     Dosage: 5 UNK, 1X/DAY
  5. ENBREL [Suspect]
     Indication: PRODUCT USED FOR UNKNOWN INDICATION
     Dosage: UNK
     Dates: start: 20061023
  6. SITAGLIPTIN [Concomitant]
     Dosage: 100 UNK, 1X/DAY
  7. APROVEL [Concomitant]
     Dosage: 150 UNK, 1X/DAY
  8. JOSACIN                            /00273601/ [Interacting]
     Indication: BRONCHITIS
     Dosage: 1000 UNK
     Dates: start: 20110404, end: 20110409

REACTIONS (5)
  - BRONCHITIS [None]
  - INFLUENZA [None]
  - POLYARTHRITIS [None]
  - DRUG INTERACTION [None]
  - GASTROINTESTINAL DISORDER [None]
